FAERS Safety Report 23659698 (Version 2)
Quarter: 2024Q4

REPORT INFORMATION
  Report Type: Spontaneous
  Country: BR (occurrence: BR)
  Receive Date: 20240321
  Receipt Date: 20241223
  Transmission Date: 20250114
  Serious: Yes (Death, Other)
  Sender: NOVARTIS
  Company Number: BR-002147023-NVSC2024BR060727

PATIENT
  Sex: Female
  Weight: 51 kg

DRUGS (4)
  1. KISQALI [Suspect]
     Active Substance: RIBOCICLIB
     Indication: Breast cancer metastatic
     Dosage: 200 MG 63 TABLETS (3 TABLETS A DAY EVERY 21 DAYS AND PAUSE7 DAYS)
     Route: 065
  2. KISQALI [Suspect]
     Active Substance: RIBOCICLIB
     Indication: Metastases to bone
  3. KISQALI [Suspect]
     Active Substance: RIBOCICLIB
     Indication: Metastases to lung
  4. ALPRAZOLAM [Concomitant]
     Active Substance: ALPRAZOLAM
     Indication: Product used for unknown indication
     Dosage: 0.25 MG
     Route: 065

REACTIONS (3)
  - Metastases to bone [Fatal]
  - Malignant neoplasm progression [Unknown]
  - Breast cancer metastatic [Unknown]
